FAERS Safety Report 9958978 (Version 1)
Quarter: 2014Q1

REPORT INFORMATION
  Report Type: Spontaneous
  Country: BR (occurrence: None)
  Receive Date: 20140228
  Receipt Date: 20140228
  Transmission Date: 20141002
  Serious: Yes (Other)
  Sender: FDA-Public Use
  Company Number: AUR-APL-2014-02232

PATIENT
  Sex: Female

DRUGS (8)
  1. ATENOLOL [Suspect]
     Indication: ARRHYTHMIA
     Dosage: 25 MG 2 IN 1 D
     Route: 048
  2. ROSUVASTATIN CALCIUM [Suspect]
     Indication: BLOOD CHOLESTEROL INCREASED
     Route: 048
  3. CIMZIA [Suspect]
     Indication: RHEUMATOID ARTHRITIS
     Dosage: 2 SYRINGES EVERY 2 HOURS
     Dates: start: 201310, end: 201311
  4. CIMZIA [Suspect]
     Indication: OSTEOARTHRITIS
     Dosage: 2 SYRINGES EVERY 2 HOURS
     Dates: start: 201310, end: 201311
  5. CLORANA [Suspect]
     Indication: HYPERTENSION
  6. ENALAPRIL MALEATE [Concomitant]
  7. MAREVAN (WARFARIN SODIUM) [Concomitant]
  8. PREDNISONE (PREDNISONE) [Concomitant]

REACTIONS (5)
  - Off label use [None]
  - Intra-abdominal haemorrhage [None]
  - Diarrhoea haemorrhagic [None]
  - Pain [None]
  - Blood pressure decreased [None]
